FAERS Safety Report 6719680-0 (Version None)
Quarter: 2010Q2

REPORT INFORMATION
  Report Type: 
  Country: None (occurrence: None)
  Receive Date: 20100510
  Receipt Date: 20100510
  Transmission Date: 20101027
  Serious: Yes (Hospitalization)
  Sender: FDA-Public Use
  Company Number: None

PATIENT
  Age: 66 Year
  Sex: Male
  Weight: 79.9 kg

DRUGS (3)
  1. BENDAMUSTINE [Suspect]
     Indication: CHRONIC LYMPHOCYTIC LEUKAEMIA
     Dosage: 177 MG 2 TIME IV
     Route: 042
     Dates: start: 20100414, end: 20100415
  2. BENDAMUSTINE 0.3 MG/DL MILLENNIUM [Suspect]
  3. RITUXAN [Suspect]
     Indication: CHRONIC LYMPHOCYTIC LEUKAEMIA
     Dosage: 739 MG ONCE IV
     Route: 042
     Dates: start: 20100414

REACTIONS (4)
  - ASTHENIA [None]
  - DIZZINESS [None]
  - EAR PAIN [None]
  - FEBRILE NEUTROPENIA [None]
